FAERS Safety Report 11712185 (Version 1)
Quarter: 2015Q4

REPORT INFORMATION
  Report Type: Spontaneous
  Country: US (occurrence: US)
  Receive Date: 20151104
  Receipt Date: 20151104
  Transmission Date: 20160304
  Serious: No
  Sender: FDA-Public Use
  Company Number: US-ELI_LILLY_AND_COMPANY-US201102002738

PATIENT
  Age: 68 Year
  Sex: Female

DRUGS (1)
  1. FORTEO [Suspect]
     Active Substance: TERIPARATIDE
     Indication: OSTEOPOROSIS
     Route: 065

REACTIONS (6)
  - Fatigue [Recovering/Resolving]
  - Dizziness [Unknown]
  - Pain [Unknown]
  - Injection site pain [Unknown]
  - Asthenia [Recovering/Resolving]
  - Myalgia [Unknown]
